FAERS Safety Report 17805789 (Version 2)
Quarter: 2020Q2

REPORT INFORMATION
  Report Type: Report from Study
  Country: None (occurrence: US)
  Receive Date: 20200519
  Receipt Date: 20200620
  Transmission Date: 20200714
  Serious: Yes (Hospitalization, Other)
  Sender: FDA-Public Use
  Company Number: US-ABBVIE-20K-163-3389363-00

PATIENT
  Age: 58 Year
  Sex: Female
  Weight: 83.99 kg

DRUGS (20)
  1. AMLODIPINE [Concomitant]
     Active Substance: AMLODIPINE BESYLATE
     Indication: HYPERTENSION
  2. FOLIC ACID. [Concomitant]
     Active Substance: FOLIC ACID
     Indication: RHEUMATOID ARTHRITIS
  3. CARVEDILOL. [Concomitant]
     Active Substance: CARVEDILOL
     Indication: PULMONARY HYPERTENSION
  4. VITAMIN D [Concomitant]
     Active Substance: VITAMIN D NOS
     Indication: VITAMIN SUPPLEMENTATION
  5. LACRILUBE [Concomitant]
     Indication: DRY EYE
  6. VICTOZA [Concomitant]
     Active Substance: LIRAGLUTIDE
     Indication: TYPE 2 DIABETES MELLITUS
  7. FOSAMAX [Concomitant]
     Active Substance: ALENDRONATE SODIUM
     Indication: MUSCLE SPASMS
  8. AMLODIPINE BESYLATE. [Concomitant]
     Active Substance: AMLODIPINE BESYLATE
     Indication: HYPERTENSION
  9. XIGDUO XR [Concomitant]
     Active Substance: DAPAGLIFLOZIN PROPANEDIOL\METFORMIN HYDROCHLORIDE
     Indication: HYPERTENSION
  10. PREDNISONE. [Concomitant]
     Active Substance: PREDNISONE
     Indication: RHEUMATOID ARTHRITIS
  11. SUBOXONE [Concomitant]
     Active Substance: BUPRENORPHINE HYDROCHLORIDE\NALOXONE HYDROCHLORIDE
     Indication: RHEUMATOID ARTHRITIS
  12. VITAMIN C [Concomitant]
     Active Substance: ASCORBIC ACID
     Indication: VITAMIN SUPPLEMENTATION
  13. METHOTREXATE. [Concomitant]
     Active Substance: METHOTREXATE
     Indication: RHEUMATOID ARTHRITIS
  14. CARVEDILOL. [Concomitant]
     Active Substance: CARVEDILOL
     Indication: MUSCLE SPASMS
  15. LYRICA [Concomitant]
     Active Substance: PREGABALIN
     Indication: FIBROMYALGIA
  16. FOSAMAX [Concomitant]
     Active Substance: ALENDRONATE SODIUM
     Indication: SUPPLEMENTATION THERAPY
  17. VITAMIN C [Concomitant]
     Active Substance: ASCORBIC ACID
     Indication: MUSCLE SPASMS
  18. HUMIRA [Suspect]
     Active Substance: ADALIMUMAB
     Indication: RHEUMATOID ARTHRITIS
     Route: 058
     Dates: start: 2017
  19. GENTEAL EYEDROPS [Concomitant]
     Indication: DRY EYE
  20. VITAMIN D [Concomitant]
     Active Substance: VITAMIN D NOS
     Indication: MUSCLE SPASMS

REACTIONS (14)
  - Mobility decreased [Recovered/Resolved]
  - Spinal cord infection [Recovering/Resolving]
  - Asthenia [Recovered/Resolved]
  - Intervertebral disc protrusion [Unknown]
  - Paralysis [Recovered/Resolved]
  - Post procedural complication [Recovered/Resolved]
  - Neck surgery [Unknown]
  - Fall [Unknown]
  - Spinal compression fracture [Not Recovered/Not Resolved]
  - Fall [Recovered/Resolved]
  - Spinal operation [Recovering/Resolving]
  - Intervertebral disc protrusion [Recovered/Resolved]
  - Musculoskeletal pain [Unknown]
  - Pain [Not Recovered/Not Resolved]

NARRATIVE: CASE EVENT DATE: 20181129
